FAERS Safety Report 18379566 (Version 1)
Quarter: 2020Q4

REPORT INFORMATION
  Report Type: Spontaneous
  Country: CA (occurrence: CA)
  Receive Date: 20201013
  Receipt Date: 20201013
  Transmission Date: 20210114
  Serious: Yes (Hospitalization)
  Sender: FDA-Public Use
  Company Number: CA-PFIZER INC-2020392344

PATIENT
  Age: 3 Day
  Sex: Female

DRUGS (1)
  1. SERTRALINE HCL [Suspect]
     Active Substance: SERTRALINE HYDROCHLORIDE
     Dosage: 150 MG, 1X/DAY
     Route: 064

REACTIONS (6)
  - Condition aggravated [Unknown]
  - Drug withdrawal syndrome neonatal [Unknown]
  - Irregular breathing [Unknown]
  - Poor feeding infant [Unknown]
  - Tremor [Unknown]
  - Maternal exposure during pregnancy [Unknown]
